FAERS Safety Report 9525184 (Version 2)
Quarter: 2014Q2

REPORT INFORMATION
  Report Type: Spontaneous
  Country: US (occurrence: None)
  Receive Date: 20130912
  Receipt Date: 20140401
  Transmission Date: 20141212
  Serious: Yes (Other)
  Sender: FDA-Public Use
  Company Number: 2013-US-000104

PATIENT
  Age: 36 Year
  Sex: Female
  Weight: 77.1 kg

DRUGS (1)
  1. XYREM [Suspect]
     Indication: NARCOLEPSY
     Route: 048
     Dates: start: 20111206

REACTIONS (11)
  - Liver disorder [None]
  - Chest pain [None]
  - Asthenia [None]
  - Lethargy [None]
  - Musculoskeletal pain [None]
  - Pain in extremity [None]
  - Neck pain [None]
  - Dizziness [None]
  - Enuresis [None]
  - Tremor [None]
  - Pain [None]
